FAERS Safety Report 8225604-X (Version None)
Quarter: 2012Q1

REPORT INFORMATION
  Report Type: 
  Country: None (occurrence: None)
  Receive Date: 20120321
  Receipt Date: 20120320
  Transmission Date: 20120608
  Serious: Yes (Death, Hospitalization)
  Sender: FDA-Public Use
  Company Number: FI-GENZYME-CAMP-1002127

PATIENT
  Sex: Male
  Weight: 60 kg

DRUGS (14)
  1. FLUDARA [Suspect]
     Dosage: 30 MG, QDX3
     Route: 048
     Dates: start: 20091006
  2. CYCLOPHOSPHAMIDE [Suspect]
     Dosage: 450 MG, QDX3
     Route: 048
     Dates: start: 20090716
  3. CAMPATH [Suspect]
     Dosage: 30 MG, ONCE
     Route: 058
     Dates: start: 20090910, end: 20090910
  4. CYCLOPHOSPHAMIDE [Suspect]
     Dosage: 350 MG, QDX3
     Route: 048
     Dates: start: 20090812
  5. CAMPATH [Suspect]
     Dosage: 30 MG, ONCE
     Route: 058
     Dates: start: 20090812, end: 20090812
  6. CYCLOPHOSPHAMIDE [Suspect]
     Indication: CHRONIC LYMPHOCYTIC LEUKAEMIA
     Dosage: 450 MG, QDX3
     Route: 048
     Dates: start: 20090619
  7. CYCLOPHOSPHAMIDE [Suspect]
     Dosage: 350 MG, QDX3
     Route: 048
     Dates: start: 20091006
  8. CYCLOPHOSPHAMIDE [Suspect]
     Dosage: 350 MG, QDX3
     Route: 048
     Dates: start: 20090910
  9. CAMPATH [Suspect]
     Dosage: 30 MG, ONCE
     Route: 058
     Dates: start: 20090716, end: 20090716
  10. FLUDARA [Suspect]
     Indication: CHRONIC LYMPHOCYTIC LEUKAEMIA
     Dosage: 40 MG, QDX3
     Route: 048
     Dates: start: 20090619
  11. FLUDARA [Suspect]
     Dosage: 40 MG, QDX3
     Route: 048
     Dates: start: 20090716
  12. FLUDARA [Suspect]
     Dosage: 30 MG, QDX3
     Route: 048
     Dates: start: 20090910
  13. CAMPATH [Suspect]
     Indication: CHRONIC LYMPHOCYTIC LEUKAEMIA
     Dosage: 30 MG, ONCE
     Route: 058
     Dates: start: 20090617, end: 20090617
  14. FLUDARA [Suspect]
     Dosage: 30 MG, QDX3
     Route: 048
     Dates: start: 20090812

REACTIONS (1)
  - PROGRESSIVE MULTIFOCAL LEUKOENCEPHALOPATHY [None]
